FAERS Safety Report 20167821 (Version 1)
Quarter: 2021Q4

REPORT INFORMATION
  Report Type: Spontaneous
  Country: US (occurrence: US)
  Receive Date: 20211210
  Receipt Date: 20211210
  Transmission Date: 20220303
  Serious: No
  Sender: FDA-Public Use
  Company Number: US-BIOVITRUM-2021US11608

PATIENT
  Age: 7 Month
  Sex: Male

DRUGS (1)
  1. SYNAGIS [Suspect]
     Active Substance: PALIVIZUMAB
     Indication: Product used for unknown indication
     Dosage: 100MG/ML
     Route: 058
     Dates: start: 20211019

REACTIONS (7)
  - Irritability [Unknown]
  - Weight increased [Unknown]
  - Dehydration [Unknown]
  - Rhinorrhoea [Unknown]
  - Insomnia [Unknown]
  - Poor feeding infant [Unknown]
  - Off label use [Unknown]

NARRATIVE: CASE EVENT DATE: 20211019
